FAERS Safety Report 13291270 (Version 7)
Quarter: 2017Q2

REPORT INFORMATION
  Report Type: Report from Study
  Country: MX (occurrence: MX)
  Receive Date: 20170303
  Receipt Date: 20170420
  Transmission Date: 20170830
  Serious: Yes (Other)
  Sender: FDA-Public Use
  Company Number: PHHY2017MX003599

PATIENT
  Age: 56 Year
  Sex: Female

DRUGS (2)
  1. OMEGA 3 [Concomitant]
     Active Substance: OMEGA-3 FATTY ACIDS
     Indication: PRODUCT USED FOR UNKNOWN INDICATION
     Route: 065
  2. ACLASTA [Suspect]
     Active Substance: ZOLEDRONIC ACID
     Indication: OSTEOPOROSIS
     Dosage: 1 DF, Q12MO
     Route: 065
     Dates: start: 20161226

REACTIONS (43)
  - Cystitis [Unknown]
  - Pruritus genital [Unknown]
  - Musculoskeletal discomfort [Unknown]
  - Depression [Unknown]
  - Anal pruritus [Unknown]
  - Fear [Unknown]
  - Abdominal abscess [Unknown]
  - Genital discomfort [Unknown]
  - Blood oestrogen decreased [Unknown]
  - Anger [Unknown]
  - Depressed mood [Unknown]
  - Headache [Unknown]
  - Abdominal distension [Unknown]
  - Malaise [Unknown]
  - Escherichia infection [Unknown]
  - Groin abscess [Unknown]
  - Pruritus [Unknown]
  - Vaginal infection [Unknown]
  - Abscess bacterial [Unknown]
  - Herpes simplex [Unknown]
  - Gastritis [Unknown]
  - Pain [Unknown]
  - Mobility decreased [Unknown]
  - Genital herpes [Unknown]
  - Vulvovaginal dryness [Unknown]
  - Discomfort [Unknown]
  - Thyroid disorder [Unknown]
  - Asthenia [Recovered/Resolved]
  - Myalgia [Recovering/Resolving]
  - Gastric infection [Recovering/Resolving]
  - Vulvovaginal pruritus [Unknown]
  - Bone pain [Unknown]
  - Headache [Recovered/Resolved]
  - Apathy [Unknown]
  - Decreased interest [Unknown]
  - Chills [Unknown]
  - Limb discomfort [Unknown]
  - Bladder prolapse [Unknown]
  - Eye pain [Recovering/Resolving]
  - Feeling abnormal [Recovering/Resolving]
  - Anxiety disorder [Unknown]
  - Fatigue [Recovered/Resolved]
  - Hernia [Unknown]

NARRATIVE: CASE EVENT DATE: 20170223
